FAERS Safety Report 4579772-1 (Version None)
Quarter: 2005Q1

REPORT INFORMATION
  Report Type: 
  Country: None (occurrence: None)
  Receive Date: 20050210
  Receipt Date: 20050201
  Transmission Date: 20050727
  Serious: Yes (Other)
  Sender: FDA-Public Use
  Company Number: 2005-02-0111

PATIENT
  Age: 32 Year
  Sex: Female

DRUGS (1)
  1. BETAMETHASONE [Suspect]
     Dosage: 12 MG; INTRAVENOUS
     Route: 042

REACTIONS (10)
  - BACK PAIN [None]
  - BLOOD CULTURE POSITIVE [None]
  - C-REACTIVE PROTEIN INCREASED [None]
  - CAESAREAN SECTION [None]
  - CANDIDIASIS [None]
  - CULTURE URINE POSITIVE [None]
  - DRUG EXPOSURE DURING PREGNANCY [None]
  - FOETAL DISTRESS SYNDROME [None]
  - PREMATURE BABY [None]
  - WHITE BLOOD CELL COUNT INCREASED [None]
